FAERS Safety Report 5288912-0 (Version None)
Quarter: 2007Q1

REPORT INFORMATION
  Report Type: 
  Country: None (occurrence: None)
  Receive Date: 20070119
  Receipt Date: 20061115
  Transmission Date: 20070707
  Serious: Yes (Hospitalization)
  Sender: FDA-Public Use
  Company Number: BDI-008861

PATIENT
  Sex: Female

DRUGS (2)
  1. PROHANCE [Suspect]
     Indication: EYE PAIN
     Dosage: 15 ML ONCE IV
     Route: 042
     Dates: start: 20061031, end: 20061031
  2. PROHANCE [Suspect]
     Indication: NUCLEAR MAGNETIC RESONANCE IMAGING BRAIN
     Dosage: 15 ML ONCE IV
     Route: 042
     Dates: start: 20061031, end: 20061031

REACTIONS (1)
  - ANAPHYLACTIC REACTION [None]
